FAERS Safety Report 4365379-8 (Version None)
Quarter: 2004Q2

REPORT INFORMATION
  Report Type: 
  Country: None (occurrence: None)
  Receive Date: 20040525
  Receipt Date: 20040506
  Transmission Date: 20050107
  Serious: Yes (Hospitalization)
  Sender: FDA-Public Use
  Company Number: CERZ-10572

PATIENT
  Age: 9 Year
  Sex: Female
  Weight: 23 kg

DRUGS (1)
  1. CEREZYME [Suspect]
     Indication: GAUCHER'S DISEASE
     Dosage: 11200 UNITS Q2WKS IV
     Route: 042

REACTIONS (3)
  - FEMUR FRACTURE [None]
  - VOMITING [None]
  - WHITE BLOOD CELL COUNT INCREASED [None]
